FAERS Safety Report 17760191 (Version 1)
Quarter: 2020Q2

REPORT INFORMATION
  Report Type: Spontaneous
  Country: US (occurrence: US)
  Receive Date: 20200508
  Receipt Date: 20200508
  Transmission Date: 20200714
  Serious: Yes (Hospitalization)
  Sender: FDA-Public Use
  Company Number: None

PATIENT
  Age: 67 Year
  Sex: Female

DRUGS (14)
  1. CHLORTHALID TAB [Concomitant]
  2. EZETIMBE [Concomitant]
     Active Substance: EZETIMIBE
  3. GLEEVEC [Suspect]
     Active Substance: IMATINIB MESYLATE
     Indication: EOSINOPHILIA
     Route: 048
     Dates: start: 20191227
  4. TYLENOL [Concomitant]
     Active Substance: ACETAMINOPHEN
  5. LANTUS [Concomitant]
     Active Substance: INSULIN GLARGINE
  6. OMEPRAZOLE. [Concomitant]
     Active Substance: OMEPRAZOLE
  7. ROSUVASTATIN. [Concomitant]
     Active Substance: ROSUVASTATIN
  8. SPIRONOLACTONE. [Concomitant]
     Active Substance: SPIRONOLACTONE
  9. METFORMIN [Concomitant]
     Active Substance: METFORMIN HYDROCHLORIDE
  10. METOPROLOL. [Concomitant]
     Active Substance: METOPROLOL
  11. LOSARTAN. [Concomitant]
     Active Substance: LOSARTAN
  12. HYDRALAZINE [Concomitant]
     Active Substance: HYDRALAZINE HYDROCHLORIDE
  13. HUMALOG [Concomitant]
     Active Substance: INSULIN LISPRO
  14. AMLODIPINE [Concomitant]
     Active Substance: AMLODIPINE BESYLATE

REACTIONS (2)
  - Ill-defined disorder [None]
  - Peripheral artery bypass [None]

NARRATIVE: CASE EVENT DATE: 20200306
